FAERS Safety Report 9564189 (Version 1)
Quarter: 2013Q3

REPORT INFORMATION
  Report Type: Spontaneous
  Country: US (occurrence: US)
  Receive Date: 20130930
  Receipt Date: 20130930
  Transmission Date: 20140515
  Serious: Yes (Other)
  Sender: FDA-Public Use
  Company Number: US-JNJFOC-20130914334

PATIENT
  Sex: 0

DRUGS (4)
  1. ASPIRIN [Suspect]
     Indication: IMMUNE TOLERANCE INDUCTION
     Route: 065
  2. MONTELUKAST [Concomitant]
     Indication: IMMUNE TOLERANCE INDUCTION
     Route: 065
  3. ANTIHISTAMINE [Concomitant]
     Indication: IMMUNE TOLERANCE INDUCTION
     Route: 065
  4. CORTICOSTEROID [Concomitant]
     Indication: IMMUNE TOLERANCE INDUCTION
     Route: 048

REACTIONS (1)
  - Asthma [Unknown]
